FAERS Safety Report 8171209-9 (Version None)
Quarter: 2012Q1

REPORT INFORMATION
  Report Type: 
  Country: None (occurrence: None)
  Receive Date: 20120228
  Receipt Date: 20120113
  Transmission Date: 20120608
  Serious: Yes (Other)
  Sender: FDA-Public Use
  Company Number: US-BRISTOL-MYERS SQUIBB COMPANY-16349870

PATIENT
  Age: 55 Year
  Sex: Male

DRUGS (2)
  1. METFORMIN HCL [Suspect]
  2. ONGLYZA [Suspect]

REACTIONS (1)
  - ALCOHOLIC PANCREATITIS [None]
